FAERS Safety Report 18234878 (Version 1)
Quarter: 2020Q3

REPORT INFORMATION
  Report Type: Spontaneous
  Country: US (occurrence: US)
  Receive Date: 20200904
  Receipt Date: 20200904
  Transmission Date: 20201103
  Serious: Yes (Other)
  Sender: FDA-Public Use
  Company Number: US-FRESENIUS MEDICAL CARE RENAL THERAPIES GROUP-FMC-2008-001001

PATIENT
  Age: 67 Year
  Sex: Male
  Weight: 125 kg

DRUGS (25)
  1. ACIPHEX [Concomitant]
     Active Substance: RABEPRAZOLE SODIUM
  2. DELFLEX WITH DEXTROSE 2.5% LOW MAGNESIUM LOW CALCIUM [Suspect]
     Active Substance: CALCIUM CHLORIDE\DEXTROSE\MAGNESIUM CHLORIDE\SODIUM CHLORIDE\SODIUM LACTATE
     Indication: END STAGE RENAL DISEASE
     Route: 033
     Dates: start: 20190226
  3. ALLOPURINOL. [Concomitant]
     Active Substance: ALLOPURINOL
  4. LORATADINE. [Concomitant]
     Active Substance: LORATADINE
  5. ALPRAZOLAM. [Concomitant]
     Active Substance: ALPRAZOLAM
  6. LEVOTHYROXINE. [Concomitant]
     Active Substance: LEVOTHYROXINE
  7. MIDODRINE [Concomitant]
     Active Substance: MIDODRINE
  8. POTASSIUM CHLORIDE. [Concomitant]
     Active Substance: POTASSIUM CHLORIDE
  9. SOLOSTAR [Concomitant]
     Active Substance: DEVICE
  10. ABILIFY [Concomitant]
     Active Substance: ARIPIPRAZOLE
  11. DOXYCYCLINE. [Concomitant]
     Active Substance: DOXYCYCLINE
  12. KEPPRA [Concomitant]
     Active Substance: LEVETIRACETAM
  13. OMEGA 3 [Concomitant]
     Active Substance: OMEGA-3 FATTY ACIDS
  14. TESTOSTERONE. [Concomitant]
     Active Substance: TESTOSTERONE
  15. DILTIAZEM. [Concomitant]
     Active Substance: DILTIAZEM
  16. DELFLEX WITH DEXTROSE 1.5% LOW MAGNESIUM LOW CALCIUM [Suspect]
     Active Substance: CALCIUM CHLORIDE\DEXTROSE\MAGNESIUM CHLORIDE\SODIUM CHLORIDE\SODIUM LACTATE
     Indication: END STAGE RENAL DISEASE
     Route: 033
     Dates: start: 20190226
  17. CALCITRIOL. [Concomitant]
     Active Substance: CALCITRIOL
  18. VELPHORO [Concomitant]
     Active Substance: SUCROFERRIC OXYHYDROXIDE
  19. METAMUCIL [Concomitant]
     Active Substance: PLANTAGO SEED
  20. ROSUVASTATIN. [Concomitant]
     Active Substance: ROSUVASTATIN
  21. DELFLEX WITH DEXTROSE 4.25% LOW MAGNESIUM LOW CALCIUM [Suspect]
     Active Substance: CALCIUM CHLORIDE\DEXTROSE\MAGNESIUM CHLORIDE\SODIUM CHLORIDE\SODIUM LACTATE
     Indication: END STAGE RENAL DISEASE
     Route: 033
     Dates: start: 20190226
  22. COLACE [Concomitant]
     Active Substance: DOCUSATE SODIUM
  23. GENTAMYCIN CREAM [Concomitant]
     Active Substance: GENTAMICIN
  24. GLUCOSE [Concomitant]
     Active Substance: DEXTROSE
  25. HUMALOG [Concomitant]
     Active Substance: INSULIN LISPRO

REACTIONS (1)
  - Peritonitis bacterial [Recovering/Resolving]

NARRATIVE: CASE EVENT DATE: 20200807
